FAERS Safety Report 25792482 (Version 2)
Quarter: 2025Q3

REPORT INFORMATION
  Report Type: Report from Study
  Country: EU (occurrence: EU)
  Receive Date: 20250911
  Receipt Date: 20250918
  Transmission Date: 20251021
  Serious: No
  Sender: TAKEDA
  Company Number: EU-TAKEDA-2025TUS078795

PATIENT
  Age: 39 Year
  Sex: Male

DRUGS (1)
  1. BRIGATINIB [Suspect]
     Active Substance: BRIGATINIB
     Indication: Neurofibromatosis

REACTIONS (1)
  - Off label use [Unknown]
